FAERS Safety Report 23104375 (Version 1)
Quarter: 2023Q4

REPORT INFORMATION
  Report Type: Spontaneous
  Country: US (occurrence: US)
  Receive Date: 20231025
  Receipt Date: 20231025
  Transmission Date: 20240110
  Serious: Yes (Hospitalization, Other)
  Sender: FDA-Public Use
  Company Number: US-MYLANLABS-2023M1112228

PATIENT
  Age: 22 Year

DRUGS (11)
  1. BUPROPION [Suspect]
     Active Substance: BUPROPION
     Indication: Major depression
     Dosage: 300 MILLIGRAM, QD
     Route: 065
     Dates: start: 20211229
  2. BUPROPION [Suspect]
     Active Substance: BUPROPION
     Dosage: 450 MILLIGRAM, QD, FOR 35 DAYS
     Route: 065
     Dates: start: 20220301
  3. GABAPENTIN [Suspect]
     Active Substance: GABAPENTIN
     Indication: Migraine
     Dosage: 100 MILLIGRAM, TID
     Route: 065
     Dates: start: 20220112
  4. GABAPENTIN [Suspect]
     Active Substance: GABAPENTIN
     Dosage: 300 MILLIGRAM, TID, INCREASE DOSE FOR 54 DAYS
     Route: 065
     Dates: start: 20220210
  5. GABAPENTIN [Suspect]
     Active Substance: GABAPENTIN
     Dosage: 200 MILLIGRAM, TID (TAPERED DOSE)
     Route: 065
  6. GABAPENTIN [Suspect]
     Active Substance: GABAPENTIN
     Dosage: 300 MILLIGRAM, TID, DOSE INCREASED
     Route: 065
  7. ONDANSETRON [Suspect]
     Active Substance: ONDANSETRON
     Indication: Nausea
     Dosage: 20 DOSAGE FORM (20 TABLETS)
     Route: 065
  8. AMANTADINE [Suspect]
     Active Substance: AMANTADINE
     Indication: Post-traumatic headache
     Dosage: 100 MILLIGRAM, BID
     Route: 065
     Dates: start: 20220405
  9. DULOXETINE [Suspect]
     Active Substance: DULOXETINE
     Indication: Major depression
     Dosage: 40 MILLIGRAM, BID
     Route: 065
     Dates: start: 20211229
  10. DULOXETINE [Suspect]
     Active Substance: DULOXETINE
     Dosage: 40 MILLIGRAM, QD (RESTARTED WITH REDUCED DOSE OF 40MG ONCE A DAY)
     Route: 065
  11. BOTULINUM TOXIN NOS [Concomitant]
     Active Substance: BOTULINUM TOXIN NOS
     Indication: Post-traumatic headache
     Dosage: UNK
     Route: 065

REACTIONS (3)
  - Serotonin syndrome [Recovered/Resolved]
  - Drug ineffective for unapproved indication [Unknown]
  - Off label use [Unknown]

NARRATIVE: CASE EVENT DATE: 20220424
